FAERS Safety Report 7247549-4 (Version None)
Quarter: 2011Q1

REPORT INFORMATION
  Report Type: 
  Country: None (occurrence: None)
  Receive Date: 20110127
  Receipt Date: 20110120
  Transmission Date: 20110831
  Serious: Yes (Life-Threatening, Hospitalization)
  Sender: FDA-Public Use
  Company Number: IT-BRISTOL-MYERS SQUIBB COMPANY-15295249

PATIENT
  Age: 75 Year
  Sex: Female

DRUGS (5)
  1. COUMADIN [Suspect]
     Indication: ATRIAL FIBRILLATION
     Dosage: 1DF=1 POSOLOGIC UNIT INTERRUPTED ON 14SEP2010
     Dates: start: 20100706
  2. METOPROLOL TARTRATE [Concomitant]
     Route: 048
  3. CO-EFFERALGAN [Concomitant]
  4. SEREUPIN [Concomitant]
  5. TRIATEC [Concomitant]
     Dosage: TABLET
     Route: 048

REACTIONS (2)
  - CEREBRAL HAEMORRHAGE [None]
  - HYPERTENSION [None]
